FAERS Safety Report 5693086-8 (Version None)
Quarter: 2008Q2

REPORT INFORMATION
  Report Type: 
  Country: None (occurrence: None)
  Receive Date: 20080402
  Receipt Date: 20080402
  Transmission Date: 20081010
  Serious: Yes (Other)
  Sender: FDA-Public Use
  Company Number: None

PATIENT
  Sex: Male
  Weight: 87.0906 kg

DRUGS (1)
  1. SINGULAIR [Suspect]
     Indication: HYPERSENSITIVITY
     Dosage: 10 MG DAILY PO
     Route: 048
     Dates: start: 20080128, end: 20080205

REACTIONS (3)
  - DEPRESSION [None]
  - HALLUCINATION [None]
  - NIGHTMARE [None]
